FAERS Safety Report 13036529 (Version 3)
Quarter: 2017Q1

REPORT INFORMATION
  Report Type: Spontaneous
  Country: US (occurrence: US)
  Receive Date: 20161216
  Receipt Date: 20170327
  Transmission Date: 20170428
  Serious: Yes (Hospitalization, Other)
  Sender: FDA-Public Use
  Company Number: US-SA-2016SA225684

PATIENT
  Age: 62 Year
  Sex: Female

DRUGS (3)
  1. PRADAXA [Interacting]
     Active Substance: DABIGATRAN ETEXILATE MESYLATE
     Route: 065
  2. MULTAQ [Suspect]
     Active Substance: DRONEDARONE
     Indication: ATRIAL FIBRILLATION
     Route: 048
  3. XARELTO [Concomitant]
     Active Substance: RIVAROXABAN
     Route: 065

REACTIONS (11)
  - Vaginal infection [Unknown]
  - Abdominal discomfort [Unknown]
  - Arrhythmia [Unknown]
  - Condition aggravated [Unknown]
  - Haemorrhage [Unknown]
  - Atrial fibrillation [Recovered/Resolved]
  - Contusion [Unknown]
  - Alopecia [Unknown]
  - Diarrhoea [Unknown]
  - Drug interaction [Unknown]
  - Anxiety [Unknown]

NARRATIVE: CASE EVENT DATE: 201610
